FAERS Safety Report 6341513-5 (Version None)
Quarter: 2009Q3

REPORT INFORMATION
  Report Type: 
  Country: None (occurrence: None)
  Receive Date: 20090902
  Receipt Date: 20090902
  Transmission Date: 20100115
  Serious: Yes (Other)
  Sender: FDA-Public Use
  Company Number: None

PATIENT
  Age: 68 Year
  Sex: Female
  Weight: 81.6475 kg

DRUGS (1)
  1. VALTREX [Suspect]
     Indication: HERPES ZOSTER
     Dosage: 1 3 TIMES DAY PO
     Route: 048
     Dates: start: 20090825, end: 20090831

REACTIONS (3)
  - DEAFNESS [None]
  - LUNG DISORDER [None]
  - PULMONARY FIBROSIS [None]
